FAERS Safety Report 5471217-2 (Version None)
Quarter: 2007Q3

REPORT INFORMATION
  Report Type: 
  Country: None (occurrence: None)
  Receive Date: 20070928
  Receipt Date: 20070817
  Transmission Date: 20080115
  Serious: No
  Sender: FDA-Public Use
  Company Number: A0671274A

PATIENT
  Age: 74 Year
  Sex: Male

DRUGS (6)
  1. FLOVENT [Suspect]
     Indication: CHRONIC OBSTRUCTIVE PULMONARY DISEASE
     Route: 055
  2. COMBIVENT [Concomitant]
  3. HYDROCHLOROTHIAZIDE [Concomitant]
  4. ZYRTEC [Concomitant]
  5. FLUTICASONE PROPIONATE [Concomitant]
  6. VASOTEC [Concomitant]

REACTIONS (3)
  - COUGH [None]
  - DYSPNOEA [None]
  - PHARMACEUTICAL PRODUCT COMPLAINT [None]
